FAERS Safety Report 15289922 (Version 1)
Quarter: 2018Q3

REPORT INFORMATION
  Report Type: Spontaneous
  Country: US (occurrence: US)
  Receive Date: 20180817
  Receipt Date: 20180817
  Transmission Date: 20181010
  Serious: Yes (Hospitalization)
  Sender: FDA-Public Use
  Company Number: US-FRESENIUS MEDICAL CARE RENAL THERAPIES GROUP-FMC-1808-001489

PATIENT
  Sex: Female

DRUGS (9)
  1. FUROSEMIDE. [Concomitant]
     Active Substance: FUROSEMIDE
  2. METOPROLOL. [Concomitant]
     Active Substance: METOPROLOL
  3. SENSIPAR [Concomitant]
     Active Substance: CINACALCET HYDROCHLORIDE
  4. SERTRALINE [Concomitant]
     Active Substance: SERTRALINE HYDROCHLORIDE
  5. DELFLEX [Suspect]
     Active Substance: CALCIUM CHLORIDE\DEXTROSE\MAGNESIUM CHLORIDE\SODIUM CHLORIDE\SODIUM LACTATE
     Indication: END STAGE RENAL DISEASE
     Route: 033
  6. NIFEDIPINE. [Concomitant]
     Active Substance: NIFEDIPINE
  7. ALLOPURINOL. [Concomitant]
     Active Substance: ALLOPURINOL
  8. COLCHICINE. [Concomitant]
     Active Substance: COLCHICINE
  9. ASPRIN [Concomitant]
     Active Substance: ASPIRIN

REACTIONS (4)
  - Pneumonia [Recovering/Resolving]
  - Sepsis [Recovering/Resolving]
  - Metabolic encephalopathy [Recovered/Resolved]
  - Peritonitis [Recovering/Resolving]
